FAERS Safety Report 24006314 (Version 1)
Quarter: 2024Q2

REPORT INFORMATION
  Report Type: Spontaneous
  Country: RU (occurrence: RU)
  Receive Date: 20240624
  Receipt Date: 20240624
  Transmission Date: 20240716
  Serious: Yes (Other)
  Sender: FDA-Public Use
  Company Number: RU-ABBOTT-2024A-1383021

PATIENT
  Age: 1 Year
  Sex: Female
  Weight: 12 kg

DRUGS (1)
  1. CREON [Suspect]
     Active Substance: PANCRELIPASE AMYLASE\PANCRELIPASE LIPASE\PANCRELIPASE PROTEASE
     Indication: Accidental exposure to product by child
     Dosage: GRANULES FROM 10 TABLETS (ASR COMMENT: MOST LIKELY A REPORTER^S ERROR: GRANULES FROM 10 CAPSULES)...
     Route: 048
     Dates: start: 20231209, end: 20231209

REACTIONS (2)
  - Abdominal pain [Recovered/Resolved]
  - Medication error [Unknown]
